FAERS Safety Report 5237113-0 (Version None)
Quarter: 2007Q1

REPORT INFORMATION
  Report Type: 
  Country: None (occurrence: None)
  Receive Date: 20070213
  Receipt Date: 20070208
  Transmission Date: 20070707
  Serious: Yes (Other)
  Sender: FDA-Public Use
  Company Number: 200710594EU

PATIENT
  Sex: Female

DRUGS (2)
  1. NICORETTE [Suspect]
     Route: 002
  2. ANTIDIABETIC (UNSPECIFIED) [Concomitant]
     Indication: DIABETES MELLITUS

REACTIONS (3)
  - DEPENDENCE [None]
  - INTENTIONAL DRUG MISUSE [None]
  - WEIGHT INCREASED [None]
